FAERS Safety Report 23934882 (Version 1)
Quarter: 2024Q2

REPORT INFORMATION
  Report Type: Spontaneous
  Country: FR (occurrence: None)
  Receive Date: 20240604
  Receipt Date: 20240604
  Transmission Date: 20240716
  Serious: Yes (Hospitalization)
  Sender: FDA-Public Use
  Company Number: 2024A123778

PATIENT
  Age: 91 Year
  Sex: Male
  Weight: 72 kg

DRUGS (2)
  1. DAPAGLIFLOZIN [Suspect]
     Active Substance: DAPAGLIFLOZIN
     Indication: Diabetes mellitus
     Route: 048
     Dates: start: 20240221, end: 20240315
  2. ZOLEDRONIC ACID ALTAN [Concomitant]
     Indication: Fracture
     Dosage: 4.0MG ONCE/SINGLE ADMINISTRATION
     Route: 040
     Dates: start: 20240216, end: 20240216

REACTIONS (3)
  - Decreased appetite [Recovered/Resolved]
  - Abnormal loss of weight [Recovering/Resolving]
  - Condition aggravated [Recovering/Resolving]

NARRATIVE: CASE EVENT DATE: 20240201
